FAERS Safety Report 6112808-5 (Version None)
Quarter: 2009Q1

REPORT INFORMATION
  Report Type: 
  Country: None (occurrence: None)
  Receive Date: 20090312
  Receipt Date: 20090311
  Transmission Date: 20090719
  Serious: Yes (Hospitalization)
  Sender: FDA-Public Use
  Company Number: FR-BRISTOL-MYERS SQUIBB COMPANY-14382477

PATIENT
  Age: 36 Year
  Sex: Female

DRUGS (3)
  1. FUNGIZONE [Suspect]
     Indication: OESOPHAGEAL CANDIDIASIS
     Dosage: TAKEN ORAL SOLN FROM 26JUN08-13JUL08 PO DAILY, TAKEN MOUTH BATH FROM 11JUL08-UNK VIA BUCCAL DAILY
     Route: 002
     Dates: start: 20080626
  2. CREON [Suspect]
     Route: 048
     Dates: start: 20080712, end: 20080715
  3. TRIFLUCAN [Suspect]
     Indication: OESOPHAGEAL CANDIDIASIS
     Route: 048
     Dates: start: 20080711, end: 20080715

REACTIONS (2)
  - CYTOLYTIC HEPATITIS [None]
  - WEIGHT INCREASED [None]
